FAERS Safety Report 5923988-6 (Version None)
Quarter: 2008Q4

REPORT INFORMATION
  Report Type: 
  Country: None (occurrence: None)
  Receive Date: 20081020
  Receipt Date: 20081009
  Transmission Date: 20090506
  Serious: Yes (Other)
  Sender: FDA-Public Use
  Company Number: PHHY2008BR24255

PATIENT
  Sex: Male
  Weight: 72 kg

DRUGS (4)
  1. TOFRANIL [Suspect]
     Indication: DEPRESSION
     Dosage: 10MG 1 TABLET PER DAY
     Route: 048
     Dates: end: 20081002
  2. OLCADIL [Suspect]
     Indication: ANXIETY
     Dosage: 1MG, 1 TABLET PER DAY
     Route: 048
  3. PHARMATON [Concomitant]
     Dosage: 1 TABLET PER DAY
     Route: 048
  4. ATENOLOL [Concomitant]
     Indication: HYPERTENSION
     Dosage: 25MG, 1 TABLET PER DAY
     Route: 048
     Dates: start: 20050101

REACTIONS (6)
  - MICTURITION URGENCY [None]
  - MUSCULOSKELETAL DISCOMFORT [None]
  - NEPHROLITHIASIS [None]
  - PREMATURE EJACULATION [None]
  - URETHRAL DISORDER [None]
  - URINARY TRACT INFECTION [None]
